FAERS Safety Report 19902808 (Version 1)
Quarter: 2021Q4

REPORT INFORMATION
  Report Type: Spontaneous
  Country: NL (occurrence: NL)
  Receive Date: 20211001
  Receipt Date: 20211001
  Transmission Date: 20220303
  Serious: Yes (Life-Threatening, Other)
  Sender: FDA-Public Use
  Company Number: NL-LRB-00684240

PATIENT
  Age: 85 Year
  Sex: Female

DRUGS (2)
  1. SIMVASTATIN [Interacting]
     Active Substance: SIMVASTATIN
     Indication: Myocardial infarction
     Dosage: 40 MILLIGRAM, ONCE A DAY
     Route: 065
     Dates: start: 202109, end: 20210906
  2. MICONAZOLE NITRATE [Interacting]
     Active Substance: MICONAZOLE NITRATE
     Indication: Product used for unknown indication
     Dosage: UNK (GEL, 20 MG/G (MILLIGRAM PER GRAM))
     Route: 065

REACTIONS (5)
  - Muscular weakness [Recovered/Resolved]
  - Blood creatine phosphokinase increased [Recovered/Resolved]
  - Rhabdomyolysis [Recovered/Resolved]
  - Myalgia [Recovered/Resolved]
  - Drug interaction [Recovered/Resolved]

NARRATIVE: CASE EVENT DATE: 20210902
